FAERS Safety Report 20127457 (Version 2)
Quarter: 2023Q2

REPORT INFORMATION
  Report Type: Report from Study
  Country: FR (occurrence: FR)
  Receive Date: 20211129
  Receipt Date: 20230510
  Transmission Date: 20230721
  Serious: Yes (Hospitalization, Other)
  Sender: FDA-Public Use
  Company Number: FR-ETHYPHARM-2021001395

PATIENT
  Age: 38 Year
  Sex: Male
  Weight: 72 kg

DRUGS (7)
  1. ACETAMINOPHEN [Suspect]
     Active Substance: ACETAMINOPHEN
     Indication: Product used for unknown indication
     Dosage: 8 GRAM, QD (SINGLE INTAKE)
     Route: 065
     Dates: start: 20210830, end: 20210830
  2. CANNABIS SATIVA SUBSP. INDICA TOP [Suspect]
     Active Substance: CANNABIS SATIVA SUBSP. INDICA TOP
     Indication: Product used for unknown indication
     Dosage: UNK
     Route: 065
     Dates: start: 20210830, end: 20210830
  3. OXAZEPAM [Suspect]
     Active Substance: OXAZEPAM
     Indication: Product used for unknown indication
     Dosage: 150 MILLIGRAM, QD (SINGLE INTAKE OF 3 DFS)
     Route: 065
     Dates: start: 20210830, end: 20210830
  4. OXAZEPAM [Suspect]
     Active Substance: OXAZEPAM
     Indication: Mixed anxiety and depressive disorder
     Dosage: 20 MILLIGRAM
     Route: 065
     Dates: start: 20210322, end: 20210831
  5. OXAZEPAM [Suspect]
     Active Substance: OXAZEPAM
     Indication: Alcohol use disorder
     Dosage: 150 MILLIGRAM, QD (SINGLE INTAKE OF 15 DFS)
     Route: 065
     Dates: start: 20210830, end: 20210830
  6. PAROXETINE [Concomitant]
     Active Substance: PAROXETINE
     Indication: Mixed anxiety and depressive disorder
     Dosage: 25 MILLIGRAM
     Route: 065
     Dates: start: 20210609, end: 20210831
  7. ATARAX [Concomitant]
     Active Substance: HYDROXYZINE HYDROCHLORIDE
     Indication: Mixed anxiety and depressive disorder
     Dosage: 25 MILLIGRAM
     Route: 065
     Dates: start: 20210609, end: 20210831

REACTIONS (2)
  - Poisoning deliberate [Recovered/Resolved]
  - Overdose [Unknown]

NARRATIVE: CASE EVENT DATE: 20210830
